FAERS Safety Report 23416487 (Version 3)
Quarter: 2025Q3

REPORT INFORMATION
  Report Type: Report from Study
  Country: US (occurrence: US)
  Receive Date: 20240118
  Receipt Date: 20250717
  Transmission Date: 20251021
  Serious: Yes (Hospitalization, Other)
  Sender: ABBVIE
  Company Number: US-ABBVIE-5591294

PATIENT
  Age: 90 Year
  Sex: Female

DRUGS (2)
  1. IMBRUVICA [Suspect]
     Active Substance: IBRUTINIB
     Indication: B-cell small lymphocytic lymphoma
     Route: 048
     Dates: start: 20231006
  2. IMBRUVICA [Suspect]
     Active Substance: IBRUTINIB
     Indication: B-cell small lymphocytic lymphoma
     Route: 048
     Dates: start: 2019

REACTIONS (10)
  - Hospitalisation [Recovered/Resolved]
  - Dizziness [Unknown]
  - Anxiety [Recovering/Resolving]
  - Hypertension [Unknown]
  - Near death experience [Unknown]
  - Laboratory test abnormal [Unknown]
  - Skin disorder [Unknown]
  - Skin papilloma [Unknown]
  - Hypoacusis [Unknown]
  - Balance disorder [Unknown]

NARRATIVE: CASE EVENT DATE: 20230101
